FAERS Safety Report 7650032-5 (Version None)
Quarter: 2011Q3

REPORT INFORMATION
  Report Type: 
  Country: None (occurrence: None)
  Receive Date: 20110802
  Receipt Date: 20110802
  Transmission Date: 20111222
  Serious: Yes (Other)
  Sender: FDA-Public Use
  Company Number: None

PATIENT
  Sex: Male
  Weight: 77.564 kg

DRUGS (2)
  1. ELOXATIN [Suspect]
     Indication: COLON NEOPLASM
     Dosage: 167MG
     Route: 042
     Dates: start: 20110314, end: 20110509
  2. FOLFOX6 [Concomitant]

REACTIONS (1)
  - TUNNEL VISION [None]
